FAERS Safety Report 5724276-3 (Version None)
Quarter: 2008Q2

REPORT INFORMATION
  Report Type: 
  Country: None (occurrence: None)
  Receive Date: 20080430
  Receipt Date: 20080418
  Transmission Date: 20081010
  Serious: Yes (Hospitalization, Other)
  Sender: FDA-Public Use
  Company Number: JP-PFIZER INC-2008034966

PATIENT
  Age: 66 Year
  Sex: Male
  Weight: 75 kg

DRUGS (1)
  1. VIAGRA [Suspect]
     Dates: start: 20040701, end: 20070701

REACTIONS (5)
  - CHOLESTASIS [None]
  - HEPATITIS B [None]
  - HEPATITIS CHRONIC ACTIVE [None]
  - HEPATOCELLULAR INJURY [None]
  - MALAISE [None]
